FAERS Safety Report 12970667 (Version 1)
Quarter: 2016Q4

REPORT INFORMATION
  Report Type: Spontaneous
  Country: US (occurrence: US)
  Receive Date: 20161123
  Receipt Date: 20161123
  Transmission Date: 20170207
  Serious: Yes (Other)
  Sender: FDA-Public Use
  Company Number: US-BRISTOL-MYERS SQUIBB COMPANY-BMS-2016-098096

PATIENT
  Sex: Male
  Weight: 108.8 kg

DRUGS (1)
  1. ELIQUIS [Suspect]
     Active Substance: APIXABAN
     Indication: CEREBROVASCULAR ACCIDENT PROPHYLAXIS
     Dosage: 5 MG, BID
     Route: 048
     Dates: end: 20161113

REACTIONS (6)
  - Dyspnoea [Unknown]
  - Nausea [Unknown]
  - Tremor [Unknown]
  - Hyperhidrosis [Unknown]
  - Chills [Unknown]
  - Haemorrhage [Unknown]
